FAERS Safety Report 13556179 (Version 1)
Quarter: 2017Q2

REPORT INFORMATION
  Report Type: Spontaneous
  Country: US (occurrence: US)
  Receive Date: 20170517
  Receipt Date: 20170517
  Transmission Date: 20170830
  Serious: No
  Sender: FDA-Public Use
  Company Number: US-SA-2016SA230311

PATIENT
  Age: 63 Year
  Sex: Female

DRUGS (5)
  1. SOLOSTAR [Concomitant]
     Active Substance: DEVICE
     Dates: start: 2016
  2. LANTUS SOLOSTAR [Concomitant]
     Active Substance: INSULIN GLARGINE
  3. TOUJEO [Suspect]
     Active Substance: INSULIN GLARGINE
     Indication: TYPE 2 DIABETES MELLITUS
     Dosage: DOSE:65 UNIT(S)
     Route: 065
     Dates: start: 2016
  4. SOLOSTAR [Concomitant]
     Active Substance: DEVICE
  5. HUMALOG [Concomitant]
     Active Substance: INSULIN LISPRO

REACTIONS (2)
  - Product use issue [Unknown]
  - Blood glucose increased [Unknown]

NARRATIVE: CASE EVENT DATE: 2016
